FAERS Safety Report 13423511 (Version 2)
Quarter: 2017Q2

REPORT INFORMATION
  Report Type: Spontaneous
  Country: US (occurrence: US)
  Receive Date: 20170410
  Receipt Date: 20170519
  Transmission Date: 20170830
  Serious: Yes (Hospitalization, Other)
  Sender: FDA-Public Use
  Company Number: US-PFIZER INC-2017153510

PATIENT
  Age: 79 Year
  Sex: Female
  Weight: 66 kg

DRUGS (3)
  1. NORVASC [Suspect]
     Active Substance: AMLODIPINE BESYLATE
     Dosage: 10 MG, (1 ON 7TH 3 X ON 8TH)
     Dates: start: 20170407
  2. NORVASC [Suspect]
     Active Substance: AMLODIPINE BESYLATE
     Indication: HYPERTENSION
     Dosage: 10 MG, UNK
     Route: 048
     Dates: end: 201703
  3. NORVASC [Suspect]
     Active Substance: AMLODIPINE BESYLATE
     Dosage: 10 MG, UNK
     Route: 048
     Dates: start: 20170331, end: 20170402

REACTIONS (9)
  - Gait disturbance [Recovering/Resolving]
  - Abdominal discomfort [Recovering/Resolving]
  - Neck pain [Recovered/Resolved]
  - Feeding disorder [Recovered/Resolved]
  - Hypoacusis [Recovering/Resolving]
  - Erythema [Recovering/Resolving]
  - Vision blurred [Recovering/Resolving]
  - Blood pressure increased [Recovered/Resolved]
  - Asthenia [Recovering/Resolving]

NARRATIVE: CASE EVENT DATE: 2017
